FAERS Safety Report 4803352-3 (Version None)
Quarter: 2005Q3

REPORT INFORMATION
  Report Type: 
  Country: None (occurrence: None)
  Receive Date: 20050929
  Receipt Date: 20050803
  Transmission Date: 20060218
  Serious: No
  Sender: FDA-Public Use
  Company Number: 05P-163-0307368-00

PATIENT
  Age: 66 Year
  Sex: Female

DRUGS (9)
  1. HUMIRA [Suspect]
     Indication: SPONDYLOARTHROPATHY
     Dosage: 40 MG, 1 IN 2 WK, SUBCUTANOUS
     Route: 058
     Dates: start: 20041101, end: 20050701
  2. RALOXIFENE HYDROCHLORIDE [Concomitant]
  3. QUINAPRIL HCL [Concomitant]
  4. DILTIAZEM HYDROCHLORIDE [Concomitant]
  5. ALENDRONATE SODIUM [Concomitant]
  6. CLOPIDOGREL BISULFATE [Concomitant]
  7. ATORVASTATIN CALCIUM [Concomitant]
  8. ZOLPIDEM TARTRATE [Concomitant]
  9. ERGOCALCIFEROL [Concomitant]

REACTIONS (1)
  - LYMPHOMA [None]
